FAERS Safety Report 5704295-3 (Version None)
Quarter: 2008Q2

REPORT INFORMATION
  Report Type: 
  Country: None (occurrence: None)
  Receive Date: 20080409
  Receipt Date: 20080326
  Transmission Date: 20081010
  Serious: Yes (Death)
  Sender: FDA-Public Use
  Company Number: MPS1-1000020

PATIENT
  Age: 11 Year
  Sex: Female
  Weight: 22 kg

DRUGS (5)
  1. ALDURAZYME [Suspect]
     Indication: MUCOPOLYSACCHARIDOSIS I
     Dosage: 58 MG, Q4W, INTRAVENOUS; 58 MG, Q4W, INTRAVENOUS
     Route: 042
     Dates: start: 20070101, end: 20070401
  2. ALDURAZYME [Suspect]
     Indication: MUCOPOLYSACCHARIDOSIS I
     Dosage: 58 MG, Q4W, INTRAVENOUS; 58 MG, Q4W, INTRAVENOUS
     Route: 042
     Dates: start: 20070901, end: 20080123
  3. FUROSEMIDE [Concomitant]
  4. DIGOXIN [Concomitant]
  5. CAPTOPRIL [Concomitant]

REACTIONS (3)
  - COR PULMONALE [None]
  - PNEUMONIA ASPIRATION [None]
  - RESPIRATORY FAILURE [None]
